FAERS Safety Report 8470851-5 (Version None)
Quarter: 2012Q2

REPORT INFORMATION
  Report Type: 
  Country: None (occurrence: None)
  Receive Date: 20120627
  Receipt Date: 20120621
  Transmission Date: 20120825
  Serious: Yes (Other)
  Sender: FDA-Public Use
  Company Number: GB-ASTELLAS-2012EU004473

PATIENT
  Age: 78 Year
  Sex: Female
  Weight: 66.5 kg

DRUGS (4)
  1. VESICARE [Suspect]
     Indication: MICTURITION URGENCY
     Dosage: 5 MG, UNKNOWN/D
     Route: 048
     Dates: start: 20110822, end: 20120601
  2. BENDROFLUMETHIAZIDE [Concomitant]
     Dosage: 2.5 MG, UNKNOWN/D
     Route: 048
  3. AMLODIPINE [Concomitant]
     Dosage: 5 MG, UNKNOWN/D
     Route: 048
  4. LEVOTHYROXINE [Concomitant]
     Dosage: 125 UG, UNKNOWN/D
     Route: 048

REACTIONS (1)
  - PHOTOSENSITIVITY REACTION [None]
